FAERS Safety Report 12367226 (Version 3)
Quarter: 2017Q2

REPORT INFORMATION
  Report Type: Spontaneous
  Country: US (occurrence: US)
  Receive Date: 20160513
  Receipt Date: 20170607
  Transmission Date: 20170830
  Serious: No
  Sender: FDA-Public Use
  Company Number: US-JNJFOC-20160500388

PATIENT
  Sex: Male

DRUGS (1)
  1. RISPERDAL [Suspect]
     Active Substance: RISPERIDONE
     Indication: AFFECTIVE DISORDER
     Dosage: VARIABLE DOSES (0.25 MG AND 0.5 MG)
     Route: 048
     Dates: start: 2002, end: 2004

REACTIONS (5)
  - Abnormal weight gain [Unknown]
  - Product use in unapproved indication [Unknown]
  - Gynaecomastia [Unknown]
  - Breast discharge [Unknown]
  - Off label use [Unknown]

NARRATIVE: CASE EVENT DATE: 2002
